FAERS Safety Report 4518129-6 (Version None)
Quarter: 2004Q4

REPORT INFORMATION
  Report Type: 
  Country: None (occurrence: None)
  Receive Date: 20041130
  Receipt Date: 20041115
  Transmission Date: 20050328
  Serious: Yes (Hospitalization)
  Sender: FDA-Public Use
  Company Number: 2004-122444-NL

PATIENT
  Age: 81 Year
  Sex: Male

DRUGS (11)
  1. MIRTAZAPINE [Suspect]
     Dosage: DF ORAL
     Route: 048
     Dates: start: 20031210, end: 20041020
  2. BUSPIRONE HCL [Suspect]
     Dosage: ORAL
     Route: 048
     Dates: start: 20040920, end: 20041015
  3. FLUINDIONE [Suspect]
     Dosage: ORAL
     Route: 048
     Dates: start: 20040825, end: 20041015
  4. DI-ANTALVIC [Suspect]
     Dosage: DF  ORAL
     Route: 048
     Dates: start: 20040722, end: 20041020
  5. AMIODARONE HCL [Suspect]
     Dosage: ORAL
     Route: 048
     Dates: end: 20041020
  6. LEUPRORELIN [Suspect]
     Dosage: ORAL
     Route: 048
     Dates: start: 20040127
  7. MODOPAR [Concomitant]
  8. NITROGLYCERIN [Concomitant]
  9. VITAMIN B-12 [Concomitant]
  10. FUROSEMIDE [Concomitant]
  11. BICALUTAMIDE [Concomitant]

REACTIONS (4)
  - EMPHYSEMA [None]
  - INTERSTITIAL LUNG DISEASE [None]
  - LUNG DISORDER [None]
  - PULMONARY FIBROSIS [None]
